FAERS Safety Report 8574359 (Version 4)
Quarter: 2013Q2

REPORT INFORMATION
  Report Type: Spontaneous
  Country: US (occurrence: US)
  Receive Date: 20120522
  Receipt Date: 20130412
  Transmission Date: 20140414
  Serious: Yes (Other)
  Sender: FDA-Public Use
  Company Number: US-PFIZER INC-2012119482

PATIENT
  Age: 59 Year
  Sex: Female
  Weight: 70.75 kg

DRUGS (6)
  1. METHOTREXATE SODIUM [Suspect]
     Dosage: UNK
  2. LYRICA [Suspect]
     Indication: FIBROMYALGIA
     Dosage: 75 MG, 3X/DAY
     Dates: end: 201303
  3. CYMBALTA [Suspect]
     Indication: FIBROMYALGIA
     Dosage: 60 MG, 1X/DAY, IN THE MORNING
  4. CYMBALTA [Suspect]
     Indication: DEPRESSION
  5. RITUXAN [Suspect]
     Indication: RHEUMATOID ARTHRITIS
     Dosage: UNK
  6. ALEVE [Concomitant]
     Dosage: UNK

REACTIONS (8)
  - Liver injury [Unknown]
  - Anaemia [Unknown]
  - Tremor [Not Recovered/Not Resolved]
  - Muscle rigidity [Not Recovered/Not Resolved]
  - Formication [Not Recovered/Not Resolved]
  - Paraesthesia [Not Recovered/Not Resolved]
  - Insomnia [Not Recovered/Not Resolved]
  - Nervous system disorder [Not Recovered/Not Resolved]
